FAERS Safety Report 24545233 (Version 1)
Quarter: 2024Q4

REPORT INFORMATION
  Report Type: Spontaneous
  Country: JP (occurrence: JP)
  Receive Date: 20241024
  Receipt Date: 20241024
  Transmission Date: 20250115
  Serious: Yes (Other)
  Sender: AEGERION
  Company Number: JP-CHIESI LTD.-AEGR007498

PATIENT

DRUGS (3)
  1. METRELEPTIN [Suspect]
     Active Substance: METRELEPTIN
     Indication: Lipodystrophy acquired
  2. METRELEPTIN [Suspect]
     Active Substance: METRELEPTIN
     Indication: Complications of bone marrow transplant
  3. INSULIN NOS [Concomitant]
     Active Substance: INSULIN NOS
     Indication: Insulin resistance

REACTIONS (2)
  - Cardiac failure congestive [Unknown]
  - Colon cancer [Unknown]
